FAERS Safety Report 6308397-2 (Version None)
Quarter: 2009Q3

REPORT INFORMATION
  Report Type: 
  Country: None (occurrence: None)
  Receive Date: 20090813
  Receipt Date: 20090809
  Transmission Date: 20100115
  Serious: Yes (Death)
  Sender: FDA-Public Use
  Company Number: US-AVENTIS-200917114US

PATIENT
  Sex: Female

DRUGS (2)
  1. LANTUS [Suspect]
     Dosage: DOSE: UNK
     Route: 058
     Dates: start: 20050101, end: 20051201
  2. OPTICLIK (INSULIN INJECTION PEN) [Suspect]
     Dates: start: 20050101, end: 20051201

REACTIONS (2)
  - CARDIAC DISORDER [None]
  - OFF LABEL USE [None]
